FAERS Safety Report 7400741-8 (Version None)
Quarter: 2011Q2

REPORT INFORMATION
  Report Type: 
  Country: None (occurrence: None)
  Receive Date: 20110407
  Receipt Date: 20110401
  Transmission Date: 20111010
  Serious: Yes (Death)
  Sender: FDA-Public Use
  Company Number: A0920320A

PATIENT
  Sex: Female

DRUGS (8)
  1. DIOVAN HCT [Concomitant]
  2. AVANDIA [Suspect]
     Dosage: 8MG PER DAY
     Route: 048
     Dates: start: 20000101, end: 20100601
  3. COREG [Concomitant]
  4. SYNTHROID [Concomitant]
  5. LIPITOR [Concomitant]
  6. GLIPIZIDE [Concomitant]
  7. GLUCOTROL [Concomitant]
  8. FOSAMAX [Concomitant]

REACTIONS (2)
  - CARDIOVASCULAR DISORDER [None]
  - DEATH [None]
